FAERS Safety Report 21667749 (Version 1)
Quarter: 2022Q4

REPORT INFORMATION
  Report Type: Spontaneous
  Country: US (occurrence: US)
  Receive Date: 20221201
  Receipt Date: 20221201
  Transmission Date: 20230113
  Serious: No
  Sender: FDA-Public Use
  Company Number: US-PFIZER INC-PV202200113945

PATIENT

DRUGS (1)
  1. VYNDAQEL [Suspect]
     Active Substance: TAFAMIDIS MEGLUMINE
     Indication: Cardiac amyloidosis
     Dosage: 3 MG, 4X/DAY

REACTIONS (4)
  - Dyspnoea [Unknown]
  - Swelling [Unknown]
  - Drug ineffective [Unknown]
  - Incorrect dosage administered [Unknown]
